FAERS Safety Report 25533917 (Version 4)
Quarter: 2025Q3

REPORT INFORMATION
  Report Type: Spontaneous
  Country: US (occurrence: US)
  Receive Date: 20250709
  Receipt Date: 20250912
  Transmission Date: 20251020
  Serious: Yes (Hospitalization)
  Sender: SANOFI AVENTIS
  Company Number: US-SA-2025SA192729

PATIENT
  Age: 79 Year
  Sex: Female
  Weight: 81.6 kg

DRUGS (36)
  1. DUPIXENT [Suspect]
     Active Substance: DUPILUMAB
     Indication: Asthma
     Route: 058
  2. DUPIXENT [Suspect]
     Active Substance: DUPILUMAB
     Dosage: 300 MG, QOW
     Route: 058
  3. CAMZYOS [Concomitant]
     Active Substance: MAVACAMTEN
  4. METOPROLOL [Concomitant]
     Active Substance: METOPROLOL
  5. CLARITIN [Concomitant]
     Active Substance: LORATADINE
  6. FLUTICASONE [Concomitant]
     Active Substance: FLUTICASONE
  7. CALCIUM CARBONATE\CHOLECALCIFEROL [Concomitant]
     Active Substance: CALCIUM CARBONATE\CHOLECALCIFEROL
  8. MAGNESIUM [Concomitant]
     Active Substance: MAGNESIUM
  9. TYLENOL [Concomitant]
     Active Substance: ACETAMINOPHEN
  10. BREO ELLIPTA [Concomitant]
     Active Substance: FLUTICASONE FUROATE\VILANTEROL TRIFENATATE
  11. REPATHA [Concomitant]
     Active Substance: EVOLOCUMAB
  12. ASPIRIN [Concomitant]
     Active Substance: ASPIRIN
  13. NYSTATIN [Concomitant]
     Active Substance: NYSTATIN
  14. MONTELUKAST [Concomitant]
     Active Substance: MONTELUKAST
  15. VITAMIN B COMPLEX [Concomitant]
     Active Substance: CYANOCOBALAMIN\DEXPANTHENOL\NIACINAMIDE\PYRIDOXINE HYDROCHLORIDE\RIBOFLAVIN 5^-PHOSPHATE SODIUM\THIA
  16. MIRALAX [Concomitant]
     Active Substance: POLYETHYLENE GLYCOL 3350
  17. JARDIANCE [Concomitant]
     Active Substance: EMPAGLIFLOZIN
  18. ALBUTEROL SULFATE [Concomitant]
     Active Substance: ALBUTEROL SULFATE
  19. CETIRIZINE [Concomitant]
     Active Substance: CETIRIZINE HYDROCHLORIDE
  20. TORSEMIDE [Concomitant]
     Active Substance: TORSEMIDE
  21. MINERALS\VITAMINS [Concomitant]
     Active Substance: MINERALS\VITAMINS
  22. ROSUVASTATIN [Concomitant]
     Active Substance: ROSUVASTATIN
  23. METOPROLOL SUCCINATE [Concomitant]
     Active Substance: METOPROLOL SUCCINATE
  24. SPIRONOLACTONE [Concomitant]
     Active Substance: SPIRONOLACTONE
  25. DULOXETINE [Concomitant]
     Active Substance: DULOXETINE
  26. METAMUCIL [Concomitant]
     Active Substance: PLANTAGO SEED
  27. AZELASTINE [Concomitant]
     Active Substance: AZELASTINE
  28. LOSARTAN [Concomitant]
     Active Substance: LOSARTAN
  29. PREDNISONE [Concomitant]
     Active Substance: PREDNISONE
  30. Qunol coq10 [Concomitant]
  31. NITROGLYCERIN [Concomitant]
     Active Substance: NITROGLYCERIN
  32. ELIQUIS [Concomitant]
     Active Substance: APIXABAN
  33. FAMOTIDINE [Concomitant]
     Active Substance: FAMOTIDINE
  34. PANTOPRAZOLE [Concomitant]
     Active Substance: PANTOPRAZOLE
  35. MELATONIN [Concomitant]
     Active Substance: MELATONIN
  36. IRON [Concomitant]
     Active Substance: IRON

REACTIONS (13)
  - Anaemia [Recovering/Resolving]
  - Dehydration [Recovering/Resolving]
  - Ear infection [Unknown]
  - Tooth extraction [Recovering/Resolving]
  - Tinnitus [Unknown]
  - Weight increased [Unknown]
  - Fluid retention [Unknown]
  - Fatigue [Unknown]
  - Asthenia [Unknown]
  - Malaise [Unknown]
  - Dyspnoea exertional [Unknown]
  - Ear inflammation [Unknown]
  - Dizziness [Unknown]

NARRATIVE: CASE EVENT DATE: 20250101
